FAERS Safety Report 5302961-5 (Version None)
Quarter: 2007Q2

REPORT INFORMATION
  Report Type: 
  Country: None (occurrence: None)
  Receive Date: 20070417
  Receipt Date: 20070417
  Transmission Date: 20071010
  Serious: Yes (Hospitalization)
  Sender: FDA-Public Use
  Company Number: None

PATIENT
  Sex: Female
  Weight: 59 kg

DRUGS (9)
  1. TEMOZOLOMIDE [Suspect]
     Dosage: 5160 MG
  2. DECADRON [Concomitant]
  3. KEPPRA [Concomitant]
  4. NEXIUM [Concomitant]
  5. BACTRIM [Concomitant]
  6. PAXIL [Concomitant]
  7. PROVIGIL [Concomitant]
  8. TRICOR [Concomitant]
  9. XANAX [Concomitant]

REACTIONS (2)
  - GRAND MAL CONVULSION [None]
  - PARTIAL SEIZURES [None]
